FAERS Safety Report 8124384-6 (Version None)
Quarter: 2012Q1

REPORT INFORMATION
  Report Type: 
  Country: None (occurrence: None)
  Receive Date: 20120209
  Receipt Date: 20120131
  Transmission Date: 20120608
  Serious: Yes (Death)
  Sender: FDA-Public Use
  Company Number: US-JNJFOC-20120201405

PATIENT
  Sex: Male

DRUGS (2)
  1. CHILDREN'S TYLENOL SUSPENSION [Suspect]
     Indication: IMMUNISATION
     Route: 048
     Dates: start: 20120125
  2. CHILDREN'S TYLENOL SUSPENSION [Suspect]
     Route: 048

REACTIONS (2)
  - WRONG DRUG ADMINISTERED [None]
  - DEATH [None]
